FAERS Safety Report 13657285 (Version 3)
Quarter: 2018Q1

REPORT INFORMATION
  Report Type: Report from Study
  Country: FR (occurrence: FR)
  Receive Date: 20170615
  Receipt Date: 20180212
  Transmission Date: 20180508
  Serious: Yes (Death, Other)
  Sender: FDA-Public Use
  Company Number: FR-PFIZER INC-2017255850

PATIENT
  Age: 46 Year
  Sex: Male

DRUGS (3)
  1. VANCOMYCIN HCL [Suspect]
     Active Substance: VANCOMYCIN HYDROCHLORIDE
     Indication: PNEUMONIA
     Dosage: 1.5 G, DAILY
  2. GENTAMICIN. [Suspect]
     Active Substance: GENTAMICIN
     Dosage: UNK
  3. CISPLATIN. [Suspect]
     Active Substance: CISPLATIN
     Dosage: UNK

REACTIONS (1)
  - Acute kidney injury [Fatal]
